FAERS Safety Report 14497791 (Version 1)
Quarter: 2018Q1

REPORT INFORMATION
  Report Type: Spontaneous
  Country: CA (occurrence: CA)
  Receive Date: 20180207
  Receipt Date: 20180207
  Transmission Date: 20180509
  Serious: Yes (Life-Threatening, Hospitalization)
  Sender: FDA-Public Use
  Company Number: CA-PFIZER INC-2018051694

PATIENT
  Age: 21 Year
  Sex: Female
  Weight: 60.77 kg

DRUGS (2)
  1. SINGULAIR [Concomitant]
     Active Substance: MONTELUKAST SODIUM
     Dosage: UNK
  2. PRISTIQ EXTENDED-RELEASE [Suspect]
     Active Substance: DESVENLAFAXINE SUCCINATE
     Indication: DEPRESSION
     Dosage: 50 MG, ONCE A DAY
     Route: 048

REACTIONS (9)
  - Lipase increased [Recovered/Resolved]
  - Suicidal ideation [Recovered/Resolved]
  - Serotonin syndrome [Recovered/Resolved]
  - Decreased appetite [Recovered/Resolved]
  - Amylase increased [Recovered/Resolved]
  - Carbon dioxide increased [Recovered/Resolved]
  - Mydriasis [Recovered/Resolved]
  - Electrocardiogram QT prolonged [Recovered/Resolved]
  - Dizziness [Recovered/Resolved]
